FAERS Safety Report 8371163-0 (Version None)
Quarter: 2012Q2

REPORT INFORMATION
  Report Type: 
  Country: None (occurrence: None)
  Receive Date: 20120518
  Receipt Date: 20120508
  Transmission Date: 20120825
  Serious: Yes (Life-Threatening, Other)
  Sender: FDA-Public Use
  Company Number: US-BRISTOL-MYERS SQUIBB COMPANY-16576480

PATIENT
  Age: 39 Year
  Sex: Male

DRUGS (2)
  1. CISPLATIN [Suspect]
     Indication: URETHRAL CANCER METASTATIC
     Dosage: DAY 1
  2. GEMCITABINE [Suspect]
     Indication: URETHRAL CANCER METASTATIC
     Dosage: DAY 1, 8 AND 15, EVERY 28 DAYS

REACTIONS (4)
  - RASH [None]
  - NEOPLASM MALIGNANT [None]
  - ANAPHYLACTIC SHOCK [None]
  - DEEP VEIN THROMBOSIS [None]
